FAERS Safety Report 6707283-3 (Version None)
Quarter: 2010Q2

REPORT INFORMATION
  Report Type: 
  Country: None (occurrence: None)
  Receive Date: 20100503
  Receipt Date: 20091111
  Transmission Date: 20101027
  Serious: No
  Sender: FDA-Public Use
  Company Number: US-ASTRAZENECA-2009SE25910

PATIENT
  Sex: Female

DRUGS (3)
  1. NEXIUM [Suspect]
     Indication: GASTROOESOPHAGEAL REFLUX DISEASE
     Route: 048
     Dates: start: 20091102
  2. ALDACTONE [Concomitant]
  3. PRANDIN [Concomitant]

REACTIONS (1)
  - HYPERGLYCAEMIA [None]
